FAERS Safety Report 23995078 (Version 2)
Quarter: 2024Q2

REPORT INFORMATION
  Report Type: Spontaneous
  Country: PL (occurrence: PL)
  Receive Date: 20240620
  Receipt Date: 20240626
  Transmission Date: 20240716
  Serious: Yes (Death, Hospitalization)
  Sender: FDA-Public Use
  Company Number: PL-PFIZER INC-PV202400079420

PATIENT
  Age: 71 Year
  Sex: Female

DRUGS (21)
  1. MEROPENEM [Suspect]
     Active Substance: MEROPENEM
     Indication: COVID-19
     Dosage: 6 G, DAILY 10 DAYS
  2. MEROPENEM [Suspect]
     Active Substance: MEROPENEM
     Indication: Encephalopathy
  3. METHYLPREDNISOLONE [Suspect]
     Active Substance: METHYLPREDNISOLONE
     Indication: COVID-19
     Dosage: 1 G, DAILY FOR 10 DAYS
  4. METHYLPREDNISOLONE [Suspect]
     Active Substance: METHYLPREDNISOLONE
     Indication: Encephalopathy
  5. ACYCLOVIR [Suspect]
     Active Substance: ACYCLOVIR
     Indication: COVID-19
     Dosage: 2 G, DAILY FOR 9 DAYS
  6. ACYCLOVIR [Suspect]
     Active Substance: ACYCLOVIR
     Indication: Encephalopathy
  7. AMANTADINE [Suspect]
     Active Substance: AMANTADINE
     Indication: COVID-19
     Dosage: 200 MG, DAILY FOR 6 DAYS
  8. AMANTADINE [Suspect]
     Active Substance: AMANTADINE
     Indication: Encephalopathy
  9. AZITHROMYCIN [Suspect]
     Active Substance: AZITHROMYCIN
     Indication: COVID-19
     Dosage: 500 MG, DAILY FOR 7 DAYS
  10. AZITHROMYCIN [Suspect]
     Active Substance: AZITHROMYCIN
     Indication: Encephalopathy
  11. CEFTRIAXONE [Suspect]
     Active Substance: CEFTRIAXONE\CEFTRIAXONE SODIUM
     Indication: COVID-19
     Dosage: 4 G, DAILY FOR 7 DAYS
  12. CEFTRIAXONE [Suspect]
     Active Substance: CEFTRIAXONE\CEFTRIAXONE SODIUM
     Indication: Encephalopathy
  13. CEREBROLYSIN [Suspect]
     Active Substance: CEREBROLYSIN
     Indication: COVID-19
     Dosage: 8.61 G, DAILY FOR 10 DAYS
  14. CEREBROLYSIN [Suspect]
     Active Substance: CEREBROLYSIN
     Indication: Encephalopathy
  15. DEXAMETHASONE [Suspect]
     Active Substance: DEXAMETHASONE
     Indication: COVID-19
     Dosage: 4 MG, DAILY FOR 3 DAYS
  16. DEXAMETHASONE [Suspect]
     Active Substance: DEXAMETHASONE
     Indication: Encephalopathy
     Dosage: INCREASE TO 16 MG/DAY FOR ANOTHER 7 DAYS
  17. ENOXAPARIN [Suspect]
     Active Substance: ENOXAPARIN
     Indication: COVID-19
     Dosage: 60 MG, DAILY  FOR 12 DAYS
  18. ENOXAPARIN [Suspect]
     Active Substance: ENOXAPARIN
     Indication: Encephalopathy
  19. TOCILIZUMAB [Suspect]
     Active Substance: TOCILIZUMAB
     Indication: COVID-19
     Dosage: UNK
  20. TOCILIZUMAB [Suspect]
     Active Substance: TOCILIZUMAB
     Indication: Encephalopathy
  21. LEVETIRACETAM [Concomitant]
     Active Substance: LEVETIRACETAM
     Indication: Epilepsy
     Dosage: 500 MG, DAILY

REACTIONS (2)
  - Off label use [Fatal]
  - Drug ineffective for unapproved indication [Fatal]
